FAERS Safety Report 18135065 (Version 1)
Quarter: 2020Q3

REPORT INFORMATION
  Report Type: Spontaneous
  Country: US (occurrence: US)
  Receive Date: 20200811
  Receipt Date: 20200811
  Transmission Date: 20201103
  Serious: No
  Sender: FDA-Public Use
  Company Number: None

PATIENT
  Age: 73 Year
  Sex: Male
  Weight: 73.94 kg

DRUGS (9)
  1. PALONOSETRON. [Suspect]
     Active Substance: PALONOSETRON HYDROCHLORIDE
     Indication: PRODUCT USED FOR UNKNOWN INDICATION
     Dosage: ?          OTHER FREQUENCY:DAYS 1,8, AND 15;?
     Route: 042
     Dates: start: 20200701, end: 20200811
  2. PADCEV [Suspect]
     Active Substance: ENFORTUMAB VEDOTIN-EJFV
     Indication: PRODUCT USED FOR UNKNOWN INDICATION
     Dosage: ?          OTHER FREQUENCY:DAYS 1,8, AND 15;?
     Route: 042
     Dates: start: 20200701, end: 20200811
  3. HYDROCODONE?ACETAMINOPHEN [Concomitant]
     Active Substance: ACETAMINOPHEN\HYDROCODONE
  4. ZOFRAN [Concomitant]
     Active Substance: ONDANSETRON HYDROCHLORIDE
  5. SIMVASTATIN. [Concomitant]
     Active Substance: SIMVASTATIN
  6. TRAMADOL. [Concomitant]
     Active Substance: TRAMADOL
  7. ASPIRIN. [Concomitant]
     Active Substance: ASPIRIN
  8. MULTIVITAMIN [Concomitant]
     Active Substance: VITAMINS
  9. TYLENOL [Concomitant]
     Active Substance: ACETAMINOPHEN

REACTIONS (1)
  - Hospice care [None]

NARRATIVE: CASE EVENT DATE: 20200811
